FAERS Safety Report 8434481-3 (Version None)
Quarter: 2012Q2

REPORT INFORMATION
  Report Type: 
  Country: None (occurrence: None)
  Receive Date: 20120614
  Receipt Date: 20120607
  Transmission Date: 20120825
  Serious: Yes (Hospitalization)
  Sender: FDA-Public Use
  Company Number: US-BIOGENIDEC-2011BI003064

PATIENT
  Age: 48 Year
  Sex: Female

DRUGS (2)
  1. AVONEX [Suspect]
     Route: 030
     Dates: start: 20030101
  2. AVONEX [Suspect]
     Indication: MULTIPLE SCLEROSIS
     Route: 030
     Dates: start: 19960801, end: 20030101

REACTIONS (14)
  - MEDICAL DEVICE REMOVAL [None]
  - DECUBITUS ULCER [None]
  - FOOT FRACTURE [None]
  - FIBULA FRACTURE [None]
  - PAIN [None]
  - PROCEDURAL PAIN [None]
  - ANKLE FRACTURE [None]
  - OSTEOMYELITIS [None]
  - FALL [None]
  - OEDEMA PERIPHERAL [None]
  - JOINT SWELLING [None]
  - CLOSTRIDIAL INFECTION [None]
  - LOSS OF CONTROL OF LEGS [None]
  - ASTHENIA [None]
